FAERS Safety Report 5370662-3 (Version None)
Quarter: 2007Q2

REPORT INFORMATION
  Report Type: 
  Country: None (occurrence: None)
  Receive Date: 20070626
  Receipt Date: 20070430
  Transmission Date: 20071010
  Serious: Yes (Other)
  Sender: FDA-Public Use
  Company Number: US-PURDUE-USA_2007_0027656

PATIENT
  Sex: Male

DRUGS (5)
  1. OXYCONTIN [Suspect]
     Indication: PAIN
     Dosage: 40 MG, DAILY
     Dates: start: 20060610, end: 20060101
  2. METFORMIN HCL [Concomitant]
     Dosage: 1000 MG, UNK
  3. ALTACE [Concomitant]
     Dosage: 5 MG, UNK
  4. AMARYL [Concomitant]
     Dosage: 4 MG, UNK
  5. CYMBALTA [Concomitant]
     Dosage: 90 MG, UNK

REACTIONS (14)
  - AGGRESSION [None]
  - CONFUSIONAL STATE [None]
  - DEPRESSION [None]
  - DISORIENTATION [None]
  - EMOTIONAL DISORDER [None]
  - INADEQUATE ANALGESIA [None]
  - MALAISE [None]
  - MEMORY IMPAIRMENT [None]
  - MENTAL IMPAIRMENT [None]
  - NERVOUSNESS [None]
  - NIGHTMARE [None]
  - SUICIDAL IDEATION [None]
  - VERBAL ABUSE [None]
  - VOMITING [None]
